FAERS Safety Report 18905261 (Version 1)
Quarter: 2021Q1

REPORT INFORMATION
  Report Type: Report from Study
  Country: US (occurrence: US)
  Receive Date: 20210217
  Receipt Date: 20210217
  Transmission Date: 20210420
  Serious: Yes (Other)
  Sender: FDA-Public Use
  Company Number: US-JNJFOC-20201119096

PATIENT
  Age: 64 Year
  Sex: Male
  Weight: 84.9 kg

DRUGS (12)
  1. SELEXIPAG [Suspect]
     Active Substance: SELEXIPAG
     Route: 048
  2. SELEXIPAG [Suspect]
     Active Substance: SELEXIPAG
     Route: 048
  3. MACITENTAN [Suspect]
     Active Substance: MACITENTAN
     Indication: PULMONARY ARTERIAL HYPERTENSION
     Route: 048
  4. SELEXIPAG [Suspect]
     Active Substance: SELEXIPAG
     Route: 048
  5. SELEXIPAG [Suspect]
     Active Substance: SELEXIPAG
     Route: 048
  6. SELEXIPAG [Suspect]
     Active Substance: SELEXIPAG
     Route: 048
  7. MACITENTAN [Suspect]
     Active Substance: MACITENTAN
     Route: 048
  8. SELEXIPAG [Suspect]
     Active Substance: SELEXIPAG
     Indication: PULMONARY ARTERIAL HYPERTENSION
     Route: 048
     Dates: start: 20201116
  9. SELEXIPAG [Suspect]
     Active Substance: SELEXIPAG
     Route: 048
  10. SELEXIPAG [Suspect]
     Active Substance: SELEXIPAG
     Route: 048
  11. TYVASO [Concomitant]
     Active Substance: TREPROSTINIL
  12. ADEMPAS [Concomitant]
     Active Substance: RIOCIGUAT

REACTIONS (16)
  - Myalgia [Recovered/Resolved]
  - Arthralgia [Recovered/Resolved]
  - Nausea [Recovered/Resolved]
  - Headache [Not Recovered/Not Resolved]
  - Limb discomfort [Unknown]
  - Macular degeneration [Unknown]
  - Neck pain [Not Recovered/Not Resolved]
  - Abdominal pain upper [Unknown]
  - Musculoskeletal stiffness [Unknown]
  - Anxiety [Unknown]
  - Diarrhoea [Not Recovered/Not Resolved]
  - Fatigue [Unknown]
  - Migraine [Recovered/Resolved]
  - Fluid retention [Unknown]
  - Discomfort [Unknown]
  - Back pain [Recovered/Resolved]

NARRATIVE: CASE EVENT DATE: 202011
